FAERS Safety Report 10943591 (Version 2)
Quarter: 2015Q2

REPORT INFORMATION
  Report Type: Spontaneous
  Country: US (occurrence: US)
  Receive Date: 20150322
  Receipt Date: 20150526
  Transmission Date: 20150821
  Serious: Yes (Other)
  Sender: FDA-Public Use
  Company Number: US-JNJFOC-20140217331

PATIENT
  Sex: Male

DRUGS (1)
  1. RISPERDAL [Suspect]
     Active Substance: RISPERIDONE
     Indication: TOURETTE^S DISORDER
     Route: 048
     Dates: start: 2001, end: 2004

REACTIONS (5)
  - Gynaecomastia [Recovering/Resolving]
  - Hyperprolactinaemia [Unknown]
  - Nipple disorder [Unknown]
  - Emotional disorder [Unknown]
  - Weight increased [Unknown]
